FAERS Safety Report 18229892 (Version 2)
Quarter: 2021Q2

REPORT INFORMATION
  Report Type: Report from Study
  Country: EC (occurrence: EC)
  Receive Date: 20200903
  Receipt Date: 20210408
  Transmission Date: 20210717
  Serious: Yes (Other)
  Sender: FDA-Public Use
  Company Number: NVSC2020EC239957

PATIENT
  Age: 27 Year
  Sex: Female
  Weight: 80 kg

DRUGS (3)
  1. SANDOSTATIN LAR DEPOT [Suspect]
     Active Substance: OCTREOTIDE ACETATE
     Dosage: 20 MG, QMO
     Route: 030
     Dates: start: 202012
  2. SANDOSTATIN LAR DEPOT [Suspect]
     Active Substance: OCTREOTIDE ACETATE
     Indication: ACROMEGALY
     Dosage: 20 MG, QMO
     Route: 030
     Dates: start: 20190426, end: 202008
  3. SANDOSTATIN LAR DEPOT [Suspect]
     Active Substance: OCTREOTIDE ACETATE

REACTIONS (11)
  - Gastritis [Unknown]
  - Cholecystitis [Recovering/Resolving]
  - Diarrhoea [Recovered/Resolved]
  - Dyspepsia [Recovered/Resolved]
  - Reflux gastritis [Unknown]
  - Pain [Recovering/Resolving]
  - Eructation [Recovering/Resolving]
  - Chest discomfort [Recovering/Resolving]
  - Abdominal pain [Recovered/Resolved]
  - Nephrolithiasis [Unknown]
  - Headache [Recovering/Resolving]

NARRATIVE: CASE EVENT DATE: 202006
